FAERS Safety Report 6198849-0 (Version None)
Quarter: 2009Q2

REPORT INFORMATION
  Report Type: 
  Country: None (occurrence: None)
  Receive Date: 20090522
  Receipt Date: 20090518
  Transmission Date: 20091009
  Serious: Yes (Hospitalization)
  Sender: FDA-Public Use
  Company Number: US-BIOGENIDEC-2008BI001028

PATIENT
  Age: 49 Year
  Sex: Female

DRUGS (1)
  1. AVONEX [Suspect]
     Indication: MULTIPLE SCLEROSIS
     Route: 030
     Dates: start: 20040413

REACTIONS (5)
  - FALL [None]
  - HUMERUS FRACTURE [None]
  - HYPOTENSION [None]
  - MOBILITY DECREASED [None]
  - OSTEOPOROSIS [None]
